FAERS Safety Report 13230823 (Version 1)
Quarter: 2017Q1

REPORT INFORMATION
  Report Type: Other
  Country: FR (occurrence: FR)
  Receive Date: 20170214
  Receipt Date: 20170214
  Transmission Date: 20170428
  Serious: Yes (Other)
  Sender: FDA-Public Use
  Company Number: FR-ALSI-201700059

PATIENT
  Age: 56 Year
  Sex: Male

DRUGS (6)
  1. GLIMEPIRIDE. [Concomitant]
     Active Substance: GLIMEPIRIDE
  2. RAMIPRIL. [Concomitant]
     Active Substance: RAMIPRIL
  3. ALLOPURINOL. [Concomitant]
     Active Substance: ALLOPURINOL
  4. OXYGEN MEDICINAL ALSF 200 BAR, GAZ POUR INHALATION, EN BOUTEILLE OXYGEN [Suspect]
     Active Substance: OXYGEN
     Indication: POSTOPERATIVE CARE
     Route: 055
     Dates: start: 20100329, end: 20100329
  5. FENOFIBRATE. [Concomitant]
     Active Substance: FENOFIBRATE
  6. OXYGEN. [Suspect]
     Active Substance: OXYGEN
     Route: 055
     Dates: start: 20100329

REACTIONS (9)
  - Nasal mucosal disorder [None]
  - Nasal discomfort [Unknown]
  - Rhinorrhoea [None]
  - Injury [None]
  - Nasal mucosal discolouration [None]
  - Swelling [None]
  - Device use error [None]
  - Frostbite [None]
  - Rhinalgia [None]
